FAERS Safety Report 6270264-0 (Version None)
Quarter: 2009Q3

REPORT INFORMATION
  Report Type: 
  Country: None (occurrence: None)
  Receive Date: 20090716
  Receipt Date: 20090708
  Transmission Date: 20100115
  Serious: Yes (Hospitalization)
  Sender: FDA-Public Use
  Company Number: SE-JNJFOC-20070202437

PATIENT
  Age: 70 Year
  Sex: Female

DRUGS (17)
  1. REMICADE [Suspect]
     Route: 042
  2. REMICADE [Suspect]
     Indication: RHEUMATOID ARTHRITIS
     Route: 042
  3. OPTINATE SEPTIMUM [Concomitant]
  4. ISOPTO-PLAIN [Concomitant]
     Route: 047
  5. ORSTANORM [Concomitant]
  6. BRICANYL [Concomitant]
  7. PREDNISOLONE [Concomitant]
  8. ALVEDON [Concomitant]
  9. PULMICORT-100 [Concomitant]
     Route: 055
  10. ATROVENT [Concomitant]
     Route: 055
  11. DEXOFAN [Concomitant]
  12. IMOVANE [Concomitant]
  13. ACETYLCYSTEINE [Concomitant]
  14. CIPRAMIL [Concomitant]
  15. ORUDIS [Concomitant]
  16. CALCICHEW D3 [Concomitant]
  17. BETAPRED [Concomitant]

REACTIONS (1)
  - NON-SMALL CELL LUNG CANCER [None]
